FAERS Safety Report 10070069 (Version 2)
Quarter: 2014Q2

REPORT INFORMATION
  Report Type: Spontaneous
  Country: DE (occurrence: DE)
  Receive Date: 20140410
  Receipt Date: 20140410
  Transmission Date: 20141212
  Serious: Yes (Hospitalization)
  Sender: FDA-Public Use
  Company Number: GXKR2014DE001360

PATIENT
  Age: 44 Year
  Sex: Female
  Weight: 90 kg

DRUGS (2)
  1. CLINDAHEXAL [Suspect]
     Dosage: 300 MG, TID
     Route: 048
  2. DIPIDOLOR [Concomitant]
     Indication: PAIN
     Route: 048

REACTIONS (7)
  - Joint effusion [Recovering/Resolving]
  - Muscle spasms [Recovering/Resolving]
  - Onychomadesis [Recovering/Resolving]
  - Alopecia [Recovering/Resolving]
  - Skin exfoliation [Recovering/Resolving]
  - Dysgeusia [Recovering/Resolving]
  - Depressed mood [Unknown]
